FAERS Safety Report 5861827-2 (Version None)
Quarter: 2008Q3

REPORT INFORMATION
  Report Type: 
  Country: None (occurrence: None)
  Receive Date: 20080827
  Receipt Date: 20080708
  Transmission Date: 20090109
  Serious: No
  Sender: FDA-Public Use
  Company Number: US-ABBOTT-08P-163-0461118-00

PATIENT
  Sex: Female

DRUGS (9)
  1. COATED PDS [Suspect]
     Indication: BLOOD CHOLESTEROL INCREASED
     Dates: start: 20080701
  2. ROSIGLITAZONE [Concomitant]
     Indication: TYPE 2 DIABETES MELLITUS
  3. PRAVASTATIN SODIUM [Concomitant]
     Indication: BLOOD CHOLESTEROL INCREASED
  4. ACETYLSALICYLIC ACID SRT [Concomitant]
     Indication: PROPHYLAXIS
  5. SERTRALINE [Concomitant]
     Indication: DEPRESSION
  6. LORAZEPAM [Concomitant]
     Indication: ANXIETY
  7. CARISOPRODOL [Concomitant]
     Indication: FIBROMYALGIA
  8. ATENOLOL [Concomitant]
     Indication: HYPERTENSION
  9. ISOSORBIDE [Concomitant]
     Indication: CORONARY ARTERY DILATATION

REACTIONS (1)
  - BLOOD GLUCOSE DECREASED [None]
